FAERS Safety Report 23502339 (Version 1)
Quarter: 2024Q1

REPORT INFORMATION
  Report Type: Spontaneous
  Country: US (occurrence: US)
  Receive Date: 20240208
  Receipt Date: 20240208
  Transmission Date: 20240409
  Serious: No
  Sender: FDA-Public Use
  Company Number: US-INTRA-CELLULAR THERAPIES, INC.-2023ICT00407

PATIENT
  Age: 48 Year
  Sex: Female

DRUGS (4)
  1. CAPLYTA [Suspect]
     Active Substance: LUMATEPERONE
     Dosage: UNK
     Dates: start: 202209
  2. TRILEPTAL [Suspect]
     Active Substance: OXCARBAZEPINE
  3. GEODON [Suspect]
     Active Substance: ZIPRASIDONE HYDROCHLORIDE\ZIPRASIDONE MESYLATE
     Dosage: HIGHEST DOSE
     Dates: end: 20230313
  4. PROZAC [Concomitant]
     Active Substance: FLUOXETINE HYDROCHLORIDE
     Dosage: UNK

REACTIONS (4)
  - Agitation [Unknown]
  - Bruxism [Unknown]
  - Fatigue [Unknown]
  - Dyskinesia [Unknown]

NARRATIVE: CASE EVENT DATE: 20230201
